FAERS Safety Report 10863978 (Version 1)
Quarter: 2015Q1

REPORT INFORMATION
  Report Type: Spontaneous
  Country: CA (occurrence: CA)
  Receive Date: 20150224
  Receipt Date: 20150224
  Transmission Date: 20150721
  Serious: Yes (Death, Hospitalization)
  Sender: FDA-Public Use
  Company Number: CA-BAXTER-2015BAX007871

PATIENT
  Age: 34 Year
  Sex: Female

DRUGS (2)
  1. BICART 720 [Suspect]
     Active Substance: SODIUM BICARBONATE
     Indication: HAEMODIALYSIS
     Route: 010
     Dates: end: 20150207
  2. ACID CONCENTRATE D12248 [Suspect]
     Active Substance: ACETIC ACID\CALCIUM CHLORIDE\DEXTROSE\MAGNESIUM CHLORIDE\POTASSIUM CHLORIDE\SODIUM CHLORIDE
     Indication: HAEMODIALYSIS
     Route: 010
     Dates: end: 20150207

REACTIONS (2)
  - Death [Fatal]
  - Unresponsive to stimuli [Unknown]
